FAERS Safety Report 4945711-4 (Version None)
Quarter: 2006Q1

REPORT INFORMATION
  Report Type: 
  Country: None (occurrence: None)
  Receive Date: 20060117
  Receipt Date: 20050428
  Transmission Date: 20060701
  Serious: Yes (Hospitalization)
  Sender: FDA-Public Use
  Company Number: A03200501258

PATIENT
  Sex: Male

DRUGS (5)
  1. PLAVIX [Suspect]
     Indication: STENT PLACEMENT
     Dosage: 300 MG ONCE - ORAL
     Route: 048
     Dates: start: 20050423, end: 20050423
  2. PLAVIX [Suspect]
     Indication: STENT PLACEMENT
     Dosage: 150 MG ONCE - ORAL
     Route: 048
     Dates: start: 20050425, end: 20050425
  3. ACETYLSALICYLIC ACID SRT [Concomitant]
  4. PRAVASTATIN [Concomitant]
  5. METOPROLOL [Concomitant]

REACTIONS (1)
  - RASH GENERALISED [None]
